FAERS Safety Report 23258879 (Version 1)
Quarter: 2023Q4

REPORT INFORMATION
  Report Type: Spontaneous
  Country: CA (occurrence: CA)
  Receive Date: 20231204
  Receipt Date: 20231204
  Transmission Date: 20240110
  Serious: Yes (Other)
  Sender: FDA-Public Use
  Company Number: CA-ORGANON-O2311CAN003079

PATIENT
  Age: 10 Year
  Sex: Male

DRUGS (3)
  1. DIPROSONE [Suspect]
     Active Substance: BETAMETHASONE DIPROPIONATE
     Indication: Dermatitis atopic
     Dosage: UNK (DOSAGE FORM: NOT SPECIFIED)
     Route: 061
  2. DESONIDE [Suspect]
     Active Substance: DESONIDE
     Indication: Dermatitis atopic
     Dosage: UNK (DOSAGE FORM: NOT SPECIFIED)
     Route: 061
  3. FUSIDIC ACID\HYDROCORTISONE ACETATE [Suspect]
     Active Substance: FUSIDIC ACID\HYDROCORTISONE ACETATE
     Indication: Dermatitis atopic
     Dosage: UNK
     Route: 061

REACTIONS (15)
  - Alopecia [Recovered/Resolved]
  - Anhidrosis [Recovered/Resolved]
  - Drug ineffective [Recovered/Resolved]
  - Emotional distress [Recovered/Resolved]
  - Erythema [Recovered/Resolved]
  - Fatigue [Recovered/Resolved]
  - Madarosis [Recovered/Resolved]
  - Pain of skin [Recovered/Resolved]
  - Paraesthesia [Recovered/Resolved]
  - Skin burning sensation [Recovered/Resolved]
  - Skin disorder [Recovered/Resolved]
  - Skin exfoliation [Recovered/Resolved]
  - Skin oedema [Recovered/Resolved]
  - Skin swelling [Recovered/Resolved]
  - Topical steroid withdrawal reaction [Recovered/Resolved]
